FAERS Safety Report 7240993-0 (Version None)
Quarter: 2011Q1

REPORT INFORMATION
  Report Type: 
  Country: None (occurrence: None)
  Receive Date: 20110120
  Receipt Date: 20110120
  Transmission Date: 20110831
  Serious: Yes (Death)
  Sender: FDA-Public Use
  Company Number: None

PATIENT
  Age: 51 Year
  Sex: Male
  Weight: 64 kg

DRUGS (1)
  1. CLOZAPINE [Suspect]
     Indication: SCHIZOPHRENIA
     Dosage: 300MG PO BID (PRIOR TO ADMIT (11/18/10))
     Route: 048

REACTIONS (4)
  - UNRESPONSIVE TO STIMULI [None]
  - FALL [None]
  - CARDIOMYOPATHY [None]
  - DYSPNOEA [None]
